FAERS Safety Report 4756482-9 (Version None)
Quarter: 2005Q3

REPORT INFORMATION
  Report Type: 
  Country: None (occurrence: None)
  Receive Date: 20050830
  Receipt Date: 20050711
  Transmission Date: 20060218
  Serious: No
  Sender: FDA-Public Use
  Company Number: US-GLAXOSMITHKLINE-A0565741A

PATIENT
  Age: 73 Year
  Sex: Female

DRUGS (2)
  1. WELLBUTRIN XL [Suspect]
     Indication: DEPRESSION
     Dosage: 150MG PER DAY
     Route: 048
     Dates: start: 20050708, end: 20050710
  2. ATIVAN [Concomitant]
     Route: 065

REACTIONS (5)
  - AGITATION [None]
  - ASTHENIA [None]
  - DYSPNOEA EXACERBATED [None]
  - INSOMNIA [None]
  - TINNITUS [None]
